FAERS Safety Report 6085736-1 (Version None)
Quarter: 2009Q1

REPORT INFORMATION
  Report Type: 
  Country: None (occurrence: None)
  Receive Date: 20090220
  Receipt Date: 20090216
  Transmission Date: 20090719
  Serious: Yes (Hospitalization, Other)
  Sender: FDA-Public Use
  Company Number: PHHY2008JP27455

PATIENT
  Sex: Male
  Weight: 50 kg

DRUGS (4)
  1. VOLTAREN [Suspect]
     Indication: PAIN MANAGEMENT
     Dosage: 50MG/DAY
     Route: 048
     Dates: start: 20050101, end: 20080212
  2. PREDONINE [Concomitant]
     Indication: RHEUMATOID ARTHRITIS
     Dosage: UNK
     Route: 048
     Dates: start: 20050101
  3. METHOTREXATE [Concomitant]
     Indication: RHEUMATOID ARTHRITIS
     Dosage: UNK
     Route: 048
     Dates: start: 20050101
  4. ROCALTROL [Concomitant]
     Indication: OSTEOPOROSIS
     Dosage: 1 DF, UNK
     Route: 048
     Dates: start: 20050101

REACTIONS (9)
  - ANAEMIA [None]
  - ENDOSCOPY GASTROINTESTINAL ABNORMAL [None]
  - GASTRODUODENAL ULCER [None]
  - GASTROINTESTINAL EROSION [None]
  - MELAENA [None]
  - OESOPHAGEAL ULCER [None]
  - REFLUX OESOPHAGITIS [None]
  - SMALL INTESTINE ULCER [None]
  - VOMITING [None]
